FAERS Safety Report 7030707-1 (Version None)
Quarter: 2010Q4

REPORT INFORMATION
  Report Type: 
  Country: None (occurrence: None)
  Receive Date: 20101006
  Receipt Date: 20101004
  Transmission Date: 20110411
  Serious: Yes (Other)
  Sender: FDA-Public Use
  Company Number: CA-JNJFOC-20100907999

PATIENT
  Sex: Female

DRUGS (4)
  1. MONISTAT 7 COMBINATION PACK [Suspect]
     Route: 067
  2. MONISTAT 7 COMBINATION PACK [Suspect]
     Indication: FUNGAL INFECTION
     Route: 067
  3. MONISTAT 7 COMBINATION PACK [Suspect]
     Route: 061
  4. MONISTAT 7 COMBINATION PACK [Suspect]
     Route: 061

REACTIONS (4)
  - ASTHMA [None]
  - EYE SWELLING [None]
  - VULVOVAGINAL BURNING SENSATION [None]
  - VULVOVAGINAL PRURITUS [None]
